FAERS Safety Report 10290131 (Version 3)
Quarter: 2018Q4

REPORT INFORMATION
  Report Type: Spontaneous
  Country: US (occurrence: US)
  Receive Date: 20140710
  Receipt Date: 20181009
  Transmission Date: 20190204
  Serious: No
  Sender: FDA-Public Use
  Company Number: US-PFIZER INC-2014191248

PATIENT
  Age: 86 Year
  Sex: Female
  Weight: 175 kg

DRUGS (10)
  1. TYLENOL [Concomitant]
     Active Substance: ACETAMINOPHEN
     Indication: PAIN
     Dosage: 500 MG, AS NEEDED (EVERY 6 (SIX) HOURS AS NEEDED)
     Route: 048
  2. METROGEL [Concomitant]
     Active Substance: METRONIDAZOLE
     Dosage: UNK UNK, 2X/DAY (DISP: 45 G, REFILLS: 1)
     Route: 061
     Dates: start: 20150917
  3. ZYRETIC [Concomitant]
     Dosage: 10 MG, DAILY (DISP: 30 TABLET, REFILLS: 0)
     Route: 048
     Dates: start: 20160509
  4. LYRICA [Suspect]
     Active Substance: PREGABALIN
     Dosage: 25 MG, DAILY
     Route: 048
     Dates: start: 20161130
  5. PSYLLIUM [PLANTAGO AFRA] [Concomitant]
     Dosage: 3.4 G, DAILY
     Route: 048
  6. LYRICA [Suspect]
     Active Substance: PREGABALIN
     Indication: ABDOMINAL PAIN
     Dosage: 50 MG, UNK
  7. ESTRACE [Concomitant]
     Active Substance: ESTRADIOL
     Dosage: 1 G, DAILY (DISP: 3 TUBE, REFILLS: 1)
     Route: 067
     Dates: start: 20160927
  8. SINGULAIR [Concomitant]
     Active Substance: MONTELUKAST SODIUM
     Indication: RHINITIS ALLERGIC
     Dosage: 10 MG, AS NEEDED (TAKE 1 TABLET (10 MG TABLET) BY MOUTH DAILY AS NEEDED)
     Route: 048
     Dates: start: 20160819
  9. KENALOG [Concomitant]
     Active Substance: TRIAMCINOLONE ACETONIDE
     Dosage: UNK UNK, 2X/DAY
     Route: 061
  10. FLONASE [Concomitant]
     Active Substance: FLUTICASONE PROPIONATE
     Dosage: 200 UG, DAILY (GIVE 2 SPRAYS INTO EACH NOSTRIL DAILY)
     Route: 045
     Dates: start: 20160720

REACTIONS (3)
  - Upper respiratory tract infection [Unknown]
  - Drug ineffective for unapproved indication [Unknown]
  - Dizziness [Unknown]
